FAERS Safety Report 23396057 (Version 1)
Quarter: 2024Q1

REPORT INFORMATION
  Report Type: Spontaneous
  Country: NZ (occurrence: NZ)
  Receive Date: 20240112
  Receipt Date: 20240112
  Transmission Date: 20240409
  Serious: Yes (Hospitalization, Other)
  Sender: FDA-Public Use
  Company Number: NZ-STRIDES ARCOLAB LIMITED-2024SP000310

PATIENT
  Age: 76 Year
  Sex: Female

DRUGS (17)
  1. MORPHINE SULFATE [Suspect]
     Active Substance: MORPHINE SULFATE
     Indication: Cancer pain
     Dosage: UNK
     Route: 065
  2. DEXAMETHASONE [Suspect]
     Active Substance: DEXAMETHASONE
     Indication: Cancer pain
     Dosage: 6 MILLIGRAM PER DAY
     Route: 065
  3. HALOPERIDOL [Suspect]
     Active Substance: HALOPERIDOL
     Indication: Prophylaxis
     Dosage: UNK
     Route: 065
  4. GABAPENTIN [Suspect]
     Active Substance: GABAPENTIN
     Indication: Cancer pain
     Dosage: UNK
     Route: 065
  5. LIDOCAINE [Suspect]
     Active Substance: LIDOCAINE
     Indication: Cancer pain
     Dosage: 0.5 MILLIGRAM/KILOGRAM PER HOUR
     Route: 065
  6. LIDOCAINE [Suspect]
     Active Substance: LIDOCAINE
     Dosage: 2 MILLIGRAM/KILOGRAM PER HOUR
     Route: 065
  7. PREGABALIN [Suspect]
     Active Substance: PREGABALIN
     Indication: Cancer pain
     Dosage: 150 MILLIGRAM, BID
     Route: 065
  8. FENTANYL [Suspect]
     Active Substance: FENTANYL\FENTANYL CITRATE
     Indication: Cancer pain
     Dosage: UNK
     Route: 065
  9. FENTANYL [Suspect]
     Active Substance: FENTANYL\FENTANYL CITRATE
     Dosage: UNK
     Route: 008
  10. METHADONE [Suspect]
     Active Substance: METHADONE HYDROCHLORIDE
     Indication: Cancer pain
     Dosage: UNK
     Route: 065
  11. METHADONE [Suspect]
     Active Substance: METHADONE HYDROCHLORIDE
     Dosage: 7.5 MILLIGRAM, INFUSION 3 TIMES A DAY
     Route: 048
  12. METHADONE [Suspect]
     Active Substance: METHADONE HYDROCHLORIDE
     Dosage: 7.5 MILLIGRAM, INFUSION 3 TIMES A DAY
     Route: 058
  13. METHADONE [Suspect]
     Active Substance: METHADONE HYDROCHLORIDE
     Dosage: 25 MILLIGRAM, INFUSION
     Route: 058
  14. METHADONE [Suspect]
     Active Substance: METHADONE HYDROCHLORIDE
     Dosage: UNK RESTARTED AT A 50% DOSE REDUCTION OF METHADONE TO 10MG OVER 24 HOURS
     Route: 058
  15. KETAMINE [Concomitant]
     Active Substance: KETAMINE
     Indication: Cancer pain
     Dosage: 100 MILLIGRAM, INFUSION
     Route: 058
  16. KETAMINE [Concomitant]
     Active Substance: KETAMINE
     Dosage: 300 MILLIGRAM, INFUSION
     Route: 058
  17. MIDAZOLAM [Concomitant]
     Active Substance: MIDAZOLAM
     Indication: Cancer pain
     Dosage: 10 MILLIGRAM, INFUSION
     Route: 058

REACTIONS (5)
  - Rebound effect [Unknown]
  - Pain [Unknown]
  - Therapy non-responder [Unknown]
  - Drug ineffective [Unknown]
  - Off label use [Unknown]
